FAERS Safety Report 6471824-4 (Version None)
Quarter: 2009Q4

REPORT INFORMATION
  Report Type: 
  Country: None (occurrence: None)
  Receive Date: 20091203
  Receipt Date: 20080421
  Transmission Date: 20100525
  Serious: Yes (Hospitalization)
  Sender: FDA-Public Use
  Company Number: BE-ELI_LILLY_AND_COMPANY-BE200803003628

PATIENT
  Sex: Female
  Weight: 62 kg

DRUGS (6)
  1. FORTEO [Suspect]
     Indication: OSTEOPOROSIS
     Dosage: 20 UG, DAILY (1/D)
     Route: 058
     Dates: start: 20071211
  2. AMLOR [Concomitant]
  3. TEMESTA [Concomitant]
  4. TRAZOLAN [Concomitant]
  5. LASIX [Concomitant]
  6. DAFALGAN [Concomitant]

REACTIONS (3)
  - FALL [None]
  - SENILE DEMENTIA [None]
  - VERTIGO [None]
